FAERS Safety Report 5994960-5 (Version None)
Quarter: 2008Q4

REPORT INFORMATION
  Report Type: 
  Country: None (occurrence: None)
  Receive Date: 20081212
  Receipt Date: 20081014
  Transmission Date: 20090506
  Serious: No
  Sender: FDA-Public Use
  Company Number: US-ABBOTT-08P-163-0477117-00

PATIENT
  Sex: Male
  Weight: 72.64 kg

DRUGS (3)
  1. HUMIRA [Suspect]
     Indication: CROHN'S DISEASE
     Dosage: LOADING DOSE
     Route: 058
     Dates: start: 20080722, end: 20080722
  2. HUMIRA [Suspect]
     Dosage: LOADING DOSE
     Route: 058
     Dates: start: 20080805, end: 20080805
  3. HUMIRA [Suspect]
     Route: 058
     Dates: start: 20080819

REACTIONS (3)
  - INJECTION SITE ERYTHEMA [None]
  - INJECTION SITE RASH [None]
  - RASH PRURITIC [None]
